FAERS Safety Report 21334923 (Version 2)
Quarter: 2022Q4

REPORT INFORMATION
  Report Type: Spontaneous
  Country: BR (occurrence: BR)
  Receive Date: 20220914
  Receipt Date: 20221019
  Transmission Date: 20230113
  Serious: Yes (Other)
  Sender: FDA-Public Use
  Company Number: BR-MALLINCKRODT-T202204915

PATIENT
  Sex: Male
  Weight: 80 kg

DRUGS (2)
  1. AMITIZA [Suspect]
     Active Substance: LUBIPROSTONE
     Indication: Constipation
     Dosage: 24 MICROGRAM, Q12H FOR 2 DAYS
     Route: 048
     Dates: start: 20220901
  2. LOSARTAN [Concomitant]
     Active Substance: LOSARTAN
     Indication: Hypertension
     Dosage: UNK
     Route: 065

REACTIONS (12)
  - Dysentery [Unknown]
  - Loss of consciousness [Unknown]
  - Presyncope [Unknown]
  - Gastrointestinal motility disorder [Unknown]
  - Amnesia [Unknown]
  - Fear [Unknown]
  - Confusional state [Unknown]
  - Asthenia [Unknown]
  - Malaise [Unknown]
  - Diarrhoea [Unknown]
  - Inappropriate schedule of product administration [Unknown]
  - Off label use [Unknown]
